FAERS Safety Report 8167780-3 (Version None)
Quarter: 2012Q1

REPORT INFORMATION
  Report Type: 
  Country: None (occurrence: None)
  Receive Date: 20120227
  Receipt Date: 20120214
  Transmission Date: 20120608
  Serious: Yes (Death, Other)
  Sender: FDA-Public Use
  Company Number: GB-ROCHE-1030622

PATIENT
  Sex: Male
  Weight: 109 kg

DRUGS (2)
  1. AVASTIN [Suspect]
     Dates: start: 20120106
  2. AVASTIN [Suspect]
     Indication: MALIGNANT MELANOMA
     Dosage: DATE OF LAST DOSE ADMINISTERED PRIOR TO EVENT WAS 06-JAN-2012, TOTAL 2 INFUSIONS RECEIVED PRIOR TO E
     Route: 042
     Dates: start: 20111216

REACTIONS (3)
  - AORTIC DISSECTION [None]
  - CARDIAC TAMPONADE [None]
  - PERICARDIAL HAEMORRHAGE [None]
